FAERS Safety Report 10815254 (Version 3)
Quarter: 2015Q1

REPORT INFORMATION
  Report Type: Spontaneous
  Country: RU (occurrence: RU)
  Receive Date: 20150218
  Receipt Date: 20150306
  Transmission Date: 20150721
  Serious: Yes (Life-Threatening, Other)
  Sender: FDA-Public Use
  Company Number: RU-PFIZER INC-2015056581

PATIENT
  Age: 56 Year
  Sex: Female

DRUGS (2)
  1. SUTENT [Suspect]
     Active Substance: SUNITINIB MALATE
     Indication: METASTATIC RENAL CELL CARCINOMA
     Dosage: 50 MG ONCE A DAY, CYCLIC (4/2)
     Route: 048
     Dates: start: 20150210, end: 201502
  2. SUTENT [Suspect]
     Active Substance: SUNITINIB MALATE
     Dosage: 50 MG ONCE A DAY, CYCLIC (4/2)
     Route: 048
     Dates: start: 20150210, end: 201502

REACTIONS (4)
  - Hypoproteinaemia [Recovered/Resolved]
  - Leukopenia [Recovered/Resolved]
  - Nephropathy toxic [Recovered/Resolved]
  - Thrombocytopenia [Recovered/Resolved]

NARRATIVE: CASE EVENT DATE: 201502
